FAERS Safety Report 6157165-3 (Version None)
Quarter: 2009Q2

REPORT INFORMATION
  Report Type: 
  Country: None (occurrence: None)
  Receive Date: 20090416
  Receipt Date: 20090408
  Transmission Date: 20091009
  Serious: No
  Sender: FDA-Public Use
  Company Number: US-B.I. PHARMACEUTICALS,INC./RIDGEFIELD-2009-BP-04561BP

PATIENT

DRUGS (3)
  1. SPIRIVA [Suspect]
     Indication: EMPHYSEMA
     Dates: start: 20070201
  2. PROAIR HFA [Concomitant]
  3. MORPHINE [Concomitant]

REACTIONS (1)
  - DRUG INEFFECTIVE [None]
